FAERS Safety Report 20559955 (Version 2)
Quarter: 2022Q3

REPORT INFORMATION
  Report Type: Spontaneous
  Country: US (occurrence: US)
  Receive Date: 20220307
  Receipt Date: 20220817
  Transmission Date: 20221027
  Serious: No
  Sender: FDA-Public Use
  Company Number: US-BRISTOL-MYERS SQUIBB COMPANY-BMS-2022-030341

PATIENT
  Age: 29 Year
  Sex: Female

DRUGS (4)
  1. SPRYCEL [Suspect]
     Active Substance: DASATINIB
     Indication: Acute lymphocytic leukaemia
     Dosage: 100 MILLIGRAM, DAILY FOR 14 DAYS OF 21 DAY CYCLE
     Route: 048
  2. SPRYCEL [Suspect]
     Active Substance: DASATINIB
     Route: 048
  3. SPRYCEL [Suspect]
     Active Substance: DASATINIB
     Route: 048
  4. GRANIX [Concomitant]
     Active Substance: TBO-FILGRASTIM
     Indication: Product used for unknown indication
     Dosage: UNK
     Route: 065

REACTIONS (1)
  - Product dose omission issue [Unknown]
